FAERS Safety Report 6269217-8 (Version None)
Quarter: 2009Q3

REPORT INFORMATION
  Report Type: 
  Country: None (occurrence: None)
  Receive Date: 20090715
  Receipt Date: 20090703
  Transmission Date: 20100115
  Serious: Yes (Other)
  Sender: FDA-Public Use
  Company Number: AR-GENENTECH-286674

PATIENT
  Sex: Female

DRUGS (2)
  1. TRASTUZUMAB [Suspect]
     Indication: BREAST CANCER
     Dosage: 8 MG/KG, UNK
     Route: 065
     Dates: start: 20080722
  2. TRASTUZUMAB [Suspect]
     Dosage: 6 MG/KG, UNK
     Route: 065
     Dates: end: 20081210

REACTIONS (1)
  - CARDIOTOXICITY [None]
